FAERS Safety Report 11103641 (Version 1)
Quarter: 2015Q2

REPORT INFORMATION
  Report Type: Spontaneous
  Country: US (occurrence: US)
  Receive Date: 20150511
  Receipt Date: 20150511
  Transmission Date: 20150821
  Serious: Yes (Other)
  Sender: FDA-Public Use
  Company Number: US-HOSPIRA-2856474

PATIENT
  Age: 38 Year
  Sex: Male

DRUGS (1)
  1. PHENYTOIN. [Suspect]
     Active Substance: PHENYTOIN
     Indication: EPILEPSY

REACTIONS (4)
  - Memory impairment [Unknown]
  - Balance disorder [Unknown]
  - Gingival hypertrophy [Unknown]
  - Tooth loss [Unknown]
